FAERS Safety Report 7721997-8 (Version None)
Quarter: 2011Q3

REPORT INFORMATION
  Report Type: 
  Country: None (occurrence: None)
  Receive Date: 20110831
  Receipt Date: 20110830
  Transmission Date: 20111222
  Serious: Yes (Death)
  Sender: FDA-Public Use
  Company Number: VE-PFIZER INC-2011197690

PATIENT
  Age: 87 Year
  Sex: Male

DRUGS (1)
  1. LIPITOR [Suspect]
     Indication: INFARCTION
     Dosage: 10 MG, 1X/DAY
     Route: 048

REACTIONS (1)
  - INFARCTION [None]
